FAERS Safety Report 6755397-4 (Version None)
Quarter: 2010Q2

REPORT INFORMATION
  Report Type: 
  Country: None (occurrence: None)
  Receive Date: 20100604
  Receipt Date: 20100527
  Transmission Date: 20101027
  Serious: Yes (Other)
  Sender: FDA-Public Use
  Company Number: RU-PFIZER INC-2010067470

PATIENT
  Age: 29 Year
  Sex: Female

DRUGS (3)
  1. DOSTINEX [Suspect]
     Indication: PITUITARY TUMOUR BENIGN
     Dosage: 1.5 MG, WEEKLY
     Route: 048
     Dates: start: 19990101, end: 20000101
  2. DOSTINEX [Suspect]
     Indication: PROLACTINOMA
  3. DOSTINEX [Suspect]
     Indication: AMENORRHOEA

REACTIONS (1)
  - BLOOD PROLACTIN INCREASED [None]
